FAERS Safety Report 13038867 (Version 1)
Quarter: 2016Q4

REPORT INFORMATION
  Report Type: Other
  Country: US (occurrence: US)
  Receive Date: 20161219
  Receipt Date: 20161219
  Transmission Date: 20170207
  Serious: No
  Sender: FDA-Public Use
  Company Number: US-LUPIN PHARMACEUTICALS INC.-2016-05288

PATIENT
  Sex: Male

DRUGS (2)
  1. ZOLPIDEM [Suspect]
     Active Substance: ZOLPIDEM\ZOLPIDEM TARTRATE
     Indication: HYPOXIC-ISCHAEMIC ENCEPHALOPATHY
     Dosage: LOW DOSE
     Route: 065
  2. ZOLPIDEM [Suspect]
     Active Substance: ZOLPIDEM\ZOLPIDEM TARTRATE
     Indication: HYPOXIC-ISCHAEMIC ENCEPHALOPATHY
     Dosage: LOW DOSE
     Route: 065

REACTIONS (1)
  - Lethargy [Unknown]
